FAERS Safety Report 5003550-2 (Version None)
Quarter: 2006Q2

REPORT INFORMATION
  Report Type: 
  Country: None (occurrence: None)
  Receive Date: 20060511
  Receipt Date: 20060425
  Transmission Date: 20061013
  Serious: Yes (Other)
  Sender: FDA-Public Use
  Company Number: VNL_0141_2006

PATIENT
  Sex: Male

DRUGS (3)
  1. APO-GO [Suspect]
     Indication: PARKINSON'S DISEASE
     Dosage: VAR INFUSION SC
     Route: 058
  2. LEVODOPA [Concomitant]
  3. SIFROL [Concomitant]

REACTIONS (2)
  - BLOOD BLISTER [None]
  - OEDEMA PERIPHERAL [None]
